FAERS Safety Report 23897766 (Version 2)
Quarter: 2024Q2

REPORT INFORMATION
  Report Type: Spontaneous
  Country: US (occurrence: US)
  Receive Date: 20240524
  Receipt Date: 20240618
  Transmission Date: 20240715
  Serious: No
  Sender: FDA-Public Use
  Company Number: US-Calliditas-2024CAL00771

PATIENT
  Age: 39 Year
  Sex: Female
  Weight: 74.8 kg

DRUGS (2)
  1. TARPEYO [Suspect]
     Active Substance: BUDESONIDE
     Indication: IgA nephropathy
     Route: 048
     Dates: start: 20240406
  2. RAMIPRIL [Suspect]
     Active Substance: RAMIPRIL
     Indication: Proteinuria

REACTIONS (10)
  - Product dose omission issue [Unknown]
  - Proteinuria [Unknown]
  - Fatigue [Unknown]
  - Nausea [Unknown]
  - Constipation [Recovering/Resolving]
  - Hirsutism [Unknown]
  - Swelling face [Unknown]
  - Weight increased [Unknown]
  - Peripheral swelling [Recovering/Resolving]
  - Product residue present [Unknown]
